FAERS Safety Report 8501875-7 (Version None)
Quarter: 2012Q3

REPORT INFORMATION
  Report Type: 
  Country: None (occurrence: None)
  Receive Date: 20120711
  Receipt Date: 20120706
  Transmission Date: 20120928
  Serious: Yes (Other)
  Sender: FDA-Public Use
  Company Number: PHHY2012MX058806

PATIENT
  Sex: Female

DRUGS (2)
  1. CONTROLIP (FENOFIBRATE) [Concomitant]
     Indication: BLOOD TRIGLYCERIDES
     Dosage: 1 DF DAILY
     Dates: start: 20120101
  2. EXFORGE [Suspect]
     Indication: HYPERTENSION
     Dosage: 1 TABLET (160/5 MG) DAILY

REACTIONS (1)
  - GALLBLADDER DISORDER [None]
